FAERS Safety Report 17870199 (Version 1)
Quarter: 2020Q2

REPORT INFORMATION
  Report Type: Spontaneous
  Country: US (occurrence: US)
  Receive Date: 20200608
  Receipt Date: 20200608
  Transmission Date: 20200714
  Serious: Yes (Hospitalization)
  Sender: FDA-Public Use
  Company Number: US-ELI_LILLY_AND_COMPANY-US202005011284

PATIENT
  Sex: Male

DRUGS (2)
  1. HUMULIN R [Suspect]
     Active Substance: INSULIN HUMAN
     Indication: TYPE 2 DIABETES MELLITUS
     Dosage: 35 U, TID
     Route: 058
     Dates: start: 2016
  2. HUMULIN R [Suspect]
     Active Substance: INSULIN HUMAN
     Dosage: 110 U, TID
     Route: 058

REACTIONS (3)
  - Wrong technique in product usage process [Unknown]
  - Incorrect dose administered [Unknown]
  - Diabetic foot [Recovering/Resolving]

NARRATIVE: CASE EVENT DATE: 2016
